FAERS Safety Report 9006694 (Version 2)
Quarter: 2013Q1

REPORT INFORMATION
  Report Type: Spontaneous
  Country: US (occurrence: US)
  Receive Date: 20130110
  Receipt Date: 20130225
  Transmission Date: 20140127
  Serious: Yes (Death, Life-Threatening, Hospitalization)
  Sender: FDA-Public Use
  Company Number: US-ROCHE-1177843

PATIENT
  Age: 42 Year
  Sex: Female

DRUGS (9)
  1. PEGASYS [Suspect]
     Indication: HEPATITIS C
     Dosage: 180 MCG PER 0.5 ML
     Route: 058
     Dates: start: 20121109, end: 20130101
  2. INCIVEK [Suspect]
     Indication: HEPATITIS C
     Dosage: 2 TABLETS THREE TIMES A DAY
     Route: 048
     Dates: start: 20121109, end: 20130101
  3. RIBAVIRIN [Suspect]
     Indication: HEPATITIS C
     Route: 048
     Dates: start: 20121109, end: 20130101
  4. AMITRIPTYLINE [Concomitant]
     Dosage: AT BEDTIME
     Route: 048
     Dates: end: 20130101
  5. RANITIDINE [Concomitant]
     Route: 065
     Dates: end: 20130101
  6. SPIRONOLACTONE [Concomitant]
     Route: 065
     Dates: end: 20130101
  7. CITALOPRAM [Concomitant]
     Indication: DEPRESSION
     Route: 065
     Dates: end: 20130101
  8. OXYCODONE [Concomitant]
     Indication: PAIN
     Dosage: EVERY 6 HOURS AS NECESSARY
     Route: 048
     Dates: end: 20130101
  9. FUROSEMIDE [Concomitant]
     Route: 048
     Dates: end: 20130101

REACTIONS (6)
  - Respiratory failure [Fatal]
  - Renal failure [Fatal]
  - Disseminated intravascular coagulation [Fatal]
  - Rectal haemorrhage [Unknown]
  - Abdominal distension [Unknown]
  - Pulmonary oedema [Unknown]
